FAERS Safety Report 6220169-6 (Version None)
Quarter: 2009Q2

REPORT INFORMATION
  Report Type: 
  Country: None (occurrence: None)
  Receive Date: 20090609
  Receipt Date: 20090503
  Transmission Date: 20091009
  Serious: Yes (Hospitalization, Other)
  Sender: FDA-Public Use
  Company Number: PHHY2008MX24885

PATIENT
  Sex: Female

DRUGS (5)
  1. DIOVAN HCT [Suspect]
     Indication: HYPERTENSION
     Dosage: 1 DF, QD
     Route: 048
     Dates: start: 20030101
  2. PIROXICAM [Concomitant]
     Dosage: 2 DF, QD
     Route: 048
     Dates: start: 20041014
  3. NEXIUM [Concomitant]
     Dosage: UNK
     Route: 048
     Dates: start: 20061014
  4. ATIVAN [Concomitant]
     Dosage: 1 DF, QD
     Route: 048
     Dates: start: 19981014
  5. LYRICA [Concomitant]
     Dosage: 2 DF, QD
     Route: 048
     Dates: start: 20051014

REACTIONS (5)
  - FALL [None]
  - HIP FRACTURE [None]
  - LOWER LIMB FRACTURE [None]
  - OSTEOPOROSIS [None]
  - SURGERY [None]
